FAERS Safety Report 10037471 (Version 2)
Quarter: 2014Q2

REPORT INFORMATION
  Report Type: Spontaneous
  Country: US (occurrence: US)
  Receive Date: 20140326
  Receipt Date: 20140408
  Transmission Date: 20141212
  Serious: Yes (Hospitalization)
  Sender: FDA-Public Use
  Company Number: US-PERRIGO-14US002895

PATIENT
  Age: 66 Year
  Sex: Female
  Weight: 74.83 kg

DRUGS (2)
  1. NICOTINE POLACRILEX 4MG MINT COATED 532 [Suspect]
     Indication: SMOKING CESSATION THERAPY
     Dosage: 4 MG, 2 TO 3 TIMES DAILY
     Route: 002
     Dates: start: 20140304, end: 20140307
  2. ASPIRIN [Concomitant]
     Indication: ARTHRITIS
     Dosage: 81 MG, PRN
     Route: 048

REACTIONS (5)
  - Dehydration [Recovered/Resolved]
  - White blood cell count increased [Recovered/Resolved]
  - Diarrhoea [Recovered/Resolved]
  - Vomiting [Recovered/Resolved]
  - Underdose [Recovered/Resolved]
